FAERS Safety Report 7120658-6 (Version None)
Quarter: 2010Q4

REPORT INFORMATION
  Report Type: 
  Country: None (occurrence: None)
  Receive Date: 20101124
  Receipt Date: 20101109
  Transmission Date: 20110411
  Serious: Yes (Other)
  Sender: FDA-Public Use
  Company Number: US-BAYER-201025539NA

PATIENT
  Age: 31 Year
  Sex: Female
  Weight: 66 kg

DRUGS (6)
  1. YASMIN [Suspect]
     Indication: PRODUCT USED FOR UNKNOWN INDICATION
     Route: 048
     Dates: start: 20020101
  2. YAZ [Suspect]
     Indication: CONTRACEPTION
     Route: 048
     Dates: start: 20040101, end: 20050101
  3. HYDROCHLOROTHIAZIDE [Concomitant]
     Dates: start: 20030101, end: 20060101
  4. AMPICILLIN [Concomitant]
  5. DARVOCET [Concomitant]
     Dates: start: 20050104
  6. ALPRAZOLAM [Concomitant]
     Route: 048
     Dates: start: 20070101

REACTIONS (9)
  - ABDOMINAL DISTENSION [None]
  - ABDOMINAL PAIN [None]
  - ABDOMINAL PAIN UPPER [None]
  - CHOLECYSTITIS [None]
  - CHOLELITHIASIS [None]
  - HYPOAESTHESIA [None]
  - JOINT SWELLING [None]
  - MUSCLE SPASMS [None]
  - NIGHT SWEATS [None]
